FAERS Safety Report 7402316-3 (Version None)
Quarter: 2011Q1

REPORT INFORMATION
  Report Type: 
  Country: None (occurrence: None)
  Receive Date: 20110331
  Receipt Date: 20110323
  Transmission Date: 20110831
  Serious: Yes (Other)
  Sender: FDA-Public Use
  Company Number: LEO-2011-00279

PATIENT
  Age: 31 Year
  Sex: Female

DRUGS (1)
  1. INNOHEP [Suspect]
     Indication: THROMBOSIS PROPHYLAXIS
     Dosage: 3500 IU (3500 IU,1 IN 1 D),SUBCUTANEOUS , SUBCUTANEOUS
     Route: 058
     Dates: start: 20110218

REACTIONS (1)
  - DEEP VEIN THROMBOSIS [None]
